FAERS Safety Report 10085371 (Version 2)
Quarter: 2014Q3

REPORT INFORMATION
  Report Type: Spontaneous
  Country: US (occurrence: US)
  Receive Date: 20140417
  Receipt Date: 20140704
  Transmission Date: 20150326
  Serious: No
  Sender: FDA-Public Use
  Company Number: US-009507513-1404USA000750

PATIENT
  Age: 10 Year
  Sex: Male
  Weight: 40.82 kg

DRUGS (2)
  1. CLARITIN [Suspect]
     Active Substance: LORATADINE
     Indication: NASOPHARYNGITIS
     Dosage: 10 MG, BID
     Route: 048
     Dates: start: 20140310, end: 20140311
  2. CLARITIN [Suspect]
     Active Substance: LORATADINE
     Indication: HYPERSENSITIVITY

REACTIONS (2)
  - Overdose [Unknown]
  - Back pain [Unknown]

NARRATIVE: CASE EVENT DATE: 20140311
